FAERS Safety Report 6723783-4 (Version None)
Quarter: 2010Q2

REPORT INFORMATION
  Report Type: 
  Country: None (occurrence: None)
  Receive Date: 20100513
  Receipt Date: 20100305
  Transmission Date: 20101027
  Serious: Yes (Death, Hospitalization)
  Sender: FDA-Public Use
  Company Number: ES-ROCHE-611538

PATIENT
  Sex: Female
  Weight: 81 kg

DRUGS (2)
  1. XELODA [Suspect]
     Dosage: DISCONTINUED. FREQUENCY : 24 HRS DURING 14 DAYS.
     Route: 048
     Dates: start: 20090115, end: 20090124
  2. OXALIPLATIN [Concomitant]
     Route: 042
     Dates: start: 20090114, end: 20090114

REACTIONS (1)
  - DRUG TOXICITY [None]
